FAERS Safety Report 10238951 (Version 2)
Quarter: 2014Q3

REPORT INFORMATION
  Report Type: Spontaneous
  Country: US (occurrence: ES)
  Receive Date: 20140616
  Receipt Date: 20140703
  Transmission Date: 20150326
  Serious: Yes (Hospitalization, Other)
  Sender: FDA-Public Use
  Company Number: ES-FRI-1000068079

PATIENT
  Age: 37 Year
  Sex: Male

DRUGS (7)
  1. IRENOR [Concomitant]
     Dosage: 4 MG
  2. ANTABUSE [Concomitant]
     Active Substance: DISULFIRAM
     Dosage: 250 MG
  3. ASENAPINE [Suspect]
     Active Substance: ASENAPINE
     Indication: IMPULSE-CONTROL DISORDER
     Dosage: 5 MG
     Route: 060
     Dates: start: 20130425, end: 20140602
  4. PAROXETINE [Concomitant]
     Active Substance: PAROXETINE\PAROXETINE HYDROCHLORIDE
     Dosage: 40 MG
     Dates: start: 20140529
  5. LYRICA [Concomitant]
     Active Substance: PREGABALIN
     Dosage: 600 MG
  6. ASENAPINE [Suspect]
     Active Substance: ASENAPINE
     Indication: PSYCHOTIC DISORDER
  7. PAROXETINE [Concomitant]
     Active Substance: PAROXETINE\PAROXETINE HYDROCHLORIDE
     Dosage: 80 MG
     Dates: end: 20140529

REACTIONS (2)
  - Off label use [Recovered/Resolved]
  - Hypersensitivity [Recovered/Resolved]

NARRATIVE: CASE EVENT DATE: 20130425
